FAERS Safety Report 4875035-5 (Version None)
Quarter: 2006Q1

REPORT INFORMATION
  Report Type: 
  Country: None (occurrence: None)
  Receive Date: 20060104
  Receipt Date: 20051201
  Transmission Date: 20060701
  Serious: Yes (Hospitalization)
  Sender: FDA-Public Use
  Company Number: 220547

PATIENT
  Age: 62 Year
  Sex: Female

DRUGS (4)
  1. HERCEPTIN [Suspect]
     Indication: BREAST CANCER METASTATIC
     Dosage: 212 MG, INTRAVENOUS; SEE IMAGE
     Route: 042
     Dates: start: 20050927
  2. HERCEPTIN [Suspect]
     Indication: BREAST CANCER METASTATIC
     Dosage: 212 MG, INTRAVENOUS; SEE IMAGE
     Route: 042
     Dates: start: 20051001
  3. DOCETAXEL (DOCETAXEL) [Suspect]
     Indication: BREAST CANCER METASTATIC
     Dosage: 92 MG, QD, INTRAVENOUS
     Route: 042
     Dates: start: 20051124
  4. VOLTAREN [Concomitant]

REACTIONS (22)
  - ANAEMIA [None]
  - ANOREXIA [None]
  - BLOOD ALKALINE PHOSPHATASE INCREASED [None]
  - BLOOD LACTATE DEHYDROGENASE INCREASED [None]
  - BLOOD POTASSIUM INCREASED [None]
  - BLOOD UREA INCREASED [None]
  - CHEST DISCOMFORT [None]
  - DISEASE PROGRESSION [None]
  - DIZZINESS [None]
  - DYSGEUSIA [None]
  - EPISTAXIS [None]
  - GAIT DISTURBANCE [None]
  - HOT FLUSH [None]
  - METASTASES TO BONE [None]
  - NAUSEA [None]
  - NEUTROPHIL COUNT DECREASED [None]
  - RASH [None]
  - RED BLOOD CELL COUNT DECREASED [None]
  - SHOULDER PAIN [None]
  - VOMITING [None]
  - WHITE BLOOD CELL COUNT [None]
  - WHITE BLOOD CELL COUNT DECREASED [None]
